FAERS Safety Report 13036938 (Version 3)
Quarter: 2017Q1

REPORT INFORMATION
  Report Type: Report from Study
  Country: CA (occurrence: CA)
  Receive Date: 20161216
  Receipt Date: 20170322
  Transmission Date: 20170428
  Serious: Yes (Death, Hospitalization)
  Sender: FDA-Public Use
  Company Number: CA-HLSUS-2016-CA-000754

PATIENT
  Age: 74 Year
  Sex: Male
  Weight: 70 kg

DRUGS (13)
  1. VITAMIN D [Concomitant]
     Active Substance: CHOLECALCIFEROL
  2. ACETIC SALICYLIC ACID [Concomitant]
  3. DOMPERIDONE [Concomitant]
     Active Substance: DOMPERIDONE
     Route: 048
  4. PANTOPRAZOLE [Concomitant]
     Active Substance: PANTOPRAZOLE SODIUM
     Route: 048
  5. SINEMET [Concomitant]
     Active Substance: CARBIDOPA\LEVODOPA
     Route: 048
  6. DONEPEZIL. [Concomitant]
     Active Substance: DONEPEZIL
     Route: 048
  7. CITALOPRAM [Concomitant]
     Active Substance: CITALOPRAM HYDROBROMIDE
     Route: 048
  8. SENOKOT [Concomitant]
     Active Substance: SENNOSIDES
  9. CLOZARIL [Suspect]
     Active Substance: CLOZAPINE
     Indication: PSYCHOTIC DISORDER
     Dosage: 12.5 MG AT BEDTIME
     Route: 048
     Dates: start: 20140227, end: 20161210
  10. CARBIDOPA. [Concomitant]
     Active Substance: CARBIDOPA
     Route: 048
  11. ATORVASTATIN [Concomitant]
     Active Substance: ATORVASTATIN
     Route: 048
  12. AVODART [Concomitant]
     Active Substance: DUTASTERIDE
     Route: 048
  13. TOVIAZ [Concomitant]
     Active Substance: FESOTERODINE FUMARATE

REACTIONS (4)
  - Pneumonia aspiration [Unknown]
  - Respiratory failure [Fatal]
  - Acute kidney injury [Unknown]
  - Upper gastrointestinal haemorrhage [Fatal]

NARRATIVE: CASE EVENT DATE: 20161202
